FAERS Safety Report 25164473 (Version 1)
Quarter: 2025Q2

REPORT INFORMATION
  Report Type: Spontaneous
  Country: CA (occurrence: CA)
  Receive Date: 20250406
  Receipt Date: 20250406
  Transmission Date: 20250716
  Serious: Yes (Other)
  Sender: IPSEN
  Company Number: CA-IPSEN Group, Research and Development-2025-07608

PATIENT
  Age: 46 Year
  Sex: Female

DRUGS (1)
  1. LANREOTIDE ACETATE [Suspect]
     Active Substance: LANREOTIDE ACETATE
     Indication: Acromegaly
     Route: 065

REACTIONS (5)
  - Pericarditis [Recovered/Resolved]
  - Pericardial effusion [Unknown]
  - Ejection fraction [Unknown]
  - C-reactive protein increased [Unknown]
  - Microcytic anaemia [Unknown]
